FAERS Safety Report 5342506-7 (Version None)
Quarter: 2007Q2

REPORT INFORMATION
  Report Type: 
  Country: None (occurrence: None)
  Receive Date: 20070601
  Receipt Date: 20070524
  Transmission Date: 20071010
  Serious: Yes (Other)
  Sender: FDA-Public Use
  Company Number: US-PFIZER INC-2007025587

PATIENT
  Age: 25 Year
  Sex: Female

DRUGS (3)
  1. ZOLOFT [Suspect]
     Indication: DEPRESSION
     Route: 048
  2. ZOLOFT [Suspect]
     Indication: MIGRAINE
  3. WELLBUTRIN [Suspect]
     Indication: MIGRAINE
     Route: 048

REACTIONS (2)
  - DRY EYE [None]
  - KERATITIS [None]
